APPROVED DRUG PRODUCT: LAMIVUDINE
Active Ingredient: LAMIVUDINE
Strength: 300MG
Dosage Form/Route: TABLET;ORAL
Application: A078545 | Product #002
Applicant: PHARMOBEDIENT CONSULTING LLC
Approved: Mar 5, 2019 | RLD: No | RS: No | Type: DISCN